FAERS Safety Report 8599301-5 (Version None)
Quarter: 2012Q3

REPORT INFORMATION
  Report Type: 
  Country: None (occurrence: None)
  Receive Date: 20120816
  Receipt Date: 20120613
  Transmission Date: 20120928
  Serious: No
  Sender: FDA-Public Use
  Company Number: US-AMGEN-USASP2012026723

PATIENT
  Age: 78 Year
  Sex: Male

DRUGS (2)
  1. NEUPOGEN [Suspect]
     Indication: CHEMOTHERAPY
     Dosage: 300 MUG, QD
     Dates: start: 20100503
  2. NEUPOGEN [Suspect]
     Dosage: 300 MUG, UNK
     Route: 058
     Dates: start: 20120425, end: 20120502

REACTIONS (1)
  - UNDERDOSE [None]
